FAERS Safety Report 24765869 (Version 1)
Quarter: 2024Q4

REPORT INFORMATION
  Report Type: Spontaneous
  Country: CH (occurrence: CH)
  Receive Date: 20241223
  Receipt Date: 20241223
  Transmission Date: 20250115
  Serious: Yes (Hospitalization)
  Sender: UCB
  Company Number: None

PATIENT
  Age: 31 Year
  Sex: Female

DRUGS (4)
  1. KEPPRA [Suspect]
     Active Substance: LEVETIRACETAM
     Indication: Epilepsy
     Dosage: 500 MILLIGRAM, 2X/DAY (BID), 1-0-1, AB 31.10.2024 BRIVIACT
     Route: 048
     Dates: start: 20220829, end: 20241030
  2. VIMPAT [Suspect]
     Active Substance: LACOSAMIDE
     Indication: Epilepsy
     Dosage: 200 MILLIGRAM, 2X/DAY (BID) (1-0-1)
     Route: 048
     Dates: start: 20220830, end: 20241030
  3. VIMPAT [Suspect]
     Active Substance: LACOSAMIDE
     Dosage: 175 MILLIGRAM, 2X/DAY (BID) (1-0-1 FROM 31 OCT 2024 TAPER OFF BY 50 MG EVERY 2 WEEKS)
     Route: 048
     Dates: start: 20241031
  4. LAMOTRIGINE [Suspect]
     Active Substance: LAMOTRIGINE
     Indication: Epilepsy
     Dosage: 150 MILLIGRAM, 2X/DAY (BID) (1-0-1)
     Route: 048
     Dates: start: 20230220

REACTIONS (3)
  - Movement disorder [Recovered/Resolved]
  - Speech disorder [Recovered/Resolved]
  - Diplopia [Recovered/Resolved]

NARRATIVE: CASE EVENT DATE: 20241028
